FAERS Safety Report 19405737 (Version 1)
Quarter: 2021Q2

REPORT INFORMATION
  Report Type: Spontaneous
  Country: CN (occurrence: CN)
  Receive Date: 20210611
  Receipt Date: 20210611
  Transmission Date: 20210717
  Serious: Yes (Life-Threatening, Other)
  Sender: FDA-Public Use
  Company Number: ALC2021CN003728

PATIENT
  Age: 52 Year
  Sex: Male

DRUGS (1)
  1. FLUORESCEIN SODIUM 10% [Suspect]
     Active Substance: FLUORESCEIN SODIUM
     Indication: FLUORESCENCE ANGIOGRAM
     Dosage: 0.500 G, QD
     Route: 042
     Dates: start: 20210601, end: 20210601

REACTIONS (1)
  - Anaphylactic shock [Recovering/Resolving]

NARRATIVE: CASE EVENT DATE: 20210601
